FAERS Safety Report 4595766-4 (Version None)
Quarter: 2005Q1

REPORT INFORMATION
  Report Type: 
  Country: None (occurrence: None)
  Receive Date: 20050224
  Receipt Date: 20050214
  Transmission Date: 20050727
  Serious: Yes (Hospitalization)
  Sender: FDA-Public Use
  Company Number: 2005030202

PATIENT
  Age: 68 Year
  Sex: Male

DRUGS (3)
  1. FELDENE [Suspect]
     Indication: ARTHRALGIA
     Dosage: 20 MG (20 MG, 1 IN 1 D)
     Dates: start: 20041221, end: 20050105
  2. TETRAZEPAM (TETRAZEPAM) [Suspect]
     Indication: ARTHRALGIA
     Dosage: 50 MG (1 D)
     Dates: start: 20041221
  3. APOREX (DEXTROPROPOXYPHENE HYDROCHLORIDE, PARACETAMOL) [Suspect]
     Indication: ARTHRALGIA
     Dosage: 6 DOSE FORMS (1 D)
     Dates: start: 20041221

REACTIONS (5)
  - EXANTHEM [None]
  - PRURITUS [None]
  - RASH [None]
  - RASH MACULO-PAPULAR [None]
  - URTICARIA [None]
